FAERS Safety Report 7952641-2 (Version None)
Quarter: 2011Q4

REPORT INFORMATION
  Report Type: 
  Country: None (occurrence: None)
  Receive Date: 20111201
  Receipt Date: 20111130
  Transmission Date: 20120403
  Serious: No
  Sender: FDA-Public Use
  Company Number: US-PFIZER INC-2011292701

PATIENT
  Sex: Female
  Weight: 63.492 kg

DRUGS (1)
  1. CELEBREX [Suspect]
     Indication: ARTHRITIS
     Dosage: UNK, 1X/DAY
     Route: 048
     Dates: end: 20111127

REACTIONS (2)
  - C-REACTIVE PROTEIN INCREASED [None]
  - BLOOD IRON DECREASED [None]
